FAERS Safety Report 10392710 (Version 1)
Quarter: 2014Q3

REPORT INFORMATION
  Report Type: Report from Study
  Country: EG (occurrence: EG)
  Receive Date: 20140819
  Receipt Date: 20140819
  Transmission Date: 20150326
  Serious: Yes (Life-Threatening, Hospitalization)
  Sender: FDA-Public Use
  Company Number: EG-SA-2014SA108599

PATIENT
  Age: 77 Year
  Sex: Female

DRUGS (3)
  1. METFORMIN HYDROCHLORIDE. [Concomitant]
     Active Substance: METFORMIN HYDROCHLORIDE
  2. ACTRAPID [Concomitant]
     Active Substance: INSULIN HUMAN
  3. LANTUS [Suspect]
     Active Substance: INSULIN GLARGINE
     Indication: TYPE 2 DIABETES MELLITUS
     Route: 058
     Dates: start: 20130331

REACTIONS (4)
  - Cerebrovascular accident [Recovering/Resolving]
  - Vomiting [Unknown]
  - Accident [Unknown]
  - Concussion [Unknown]

NARRATIVE: CASE EVENT DATE: 201311
